FAERS Safety Report 15715926 (Version 2)
Quarter: 2019Q1

REPORT INFORMATION
  Report Type: Spontaneous
  Country: JP (occurrence: JP)
  Receive Date: 20181212
  Receipt Date: 20190131
  Transmission Date: 20190417
  Serious: Yes (Other)
  Sender: FDA-Public Use
  Company Number: JP-SUN PHARMACEUTICAL INDUSTRIES LTD-2018R1-193486

PATIENT
  Sex: Female

DRUGS (3)
  1. LUDIOMIL [Suspect]
     Active Substance: MAPROTILINE HYDROCHLORIDE
     Indication: NEUROPSYCHIATRIC SYMPTOMS
     Dosage: 10 MILLIGRAM, DAILY
     Route: 048
  2. MEMANTINE. [Suspect]
     Active Substance: MEMANTINE
     Indication: NEUROPSYCHIATRIC SYMPTOMS
     Dosage: 20 MILLIGRAM, DAILY
     Route: 065
  3. SULPIRIDE [Suspect]
     Active Substance: SULPIRIDE
     Indication: NEUROPSYCHIATRIC SYMPTOMS
     Dosage: 30 MILLIGRAM, DAILY
     Route: 065

REACTIONS (2)
  - Blood prolactin increased [Unknown]
  - Off label use [Recovered/Resolved]
